FAERS Safety Report 5810830-7 (Version None)
Quarter: 2008Q3

REPORT INFORMATION
  Report Type: 
  Country: None (occurrence: None)
  Receive Date: 20080710
  Receipt Date: 20080701
  Transmission Date: 20090109
  Serious: Yes (Life-Threatening, Hospitalization, Other)
  Sender: FDA-Public Use
  Company Number: 2008S1011494

PATIENT
  Age: 7 Decade
  Sex: Female

DRUGS (2)
  1. FENTANYL TRANSDERMAL SYSTEM [Suspect]
     Indication: PAIN
     Dosage: 25 UG;EVERY HOUR; TRANSDERMAL
     Route: 062
     Dates: end: 20080601
  2. FENTANYL TRANSDERMAL SYSTEM [Suspect]
     Indication: PAIN
     Dosage: 100 UG;EVERY HOUR; TRANSDERMAL
     Route: 062
     Dates: end: 20080601

REACTIONS (3)
  - DIZZINESS [None]
  - OVERDOSE [None]
  - RESPIRATORY ARREST [None]
